FAERS Safety Report 6135920-3 (Version None)
Quarter: 2009Q1

REPORT INFORMATION
  Report Type: 
  Country: None (occurrence: None)
  Receive Date: 20090327
  Receipt Date: 20090316
  Transmission Date: 20090719
  Serious: Yes (Death, Hospitalization)
  Sender: FDA-Public Use
  Company Number: NSADSS2002010023

PATIENT
  Sex: Female
  Weight: 90 kg

DRUGS (22)
  1. REMICADE [Suspect]
     Route: 041
     Dates: start: 20011120
  2. REMICADE [Suspect]
     Route: 041
     Dates: start: 20011120
  3. REMICADE [Suspect]
     Indication: RHEUMATOID ARTHRITIS
     Route: 041
     Dates: start: 20011120
  4. RESOCHIN [Concomitant]
     Dates: start: 19990101
  5. INDOMETHACIN [Concomitant]
     Indication: RHEUMATOID ARTHRITIS
  6. STEROIDS [Concomitant]
  7. ACECLOFENAC [Concomitant]
  8. VENTOLIN [Concomitant]
  9. ATROVENT [Concomitant]
  10. SEREVENT [Concomitant]
  11. PULMICORT-100 [Concomitant]
  12. ENALAPRIL [Concomitant]
  13. VITAMIN D [Concomitant]
  14. CALCIUM [Concomitant]
  15. AMITRIPTYLINE [Concomitant]
  16. PERPHENAZINE [Concomitant]
  17. LEVOTHYROXINE [Concomitant]
     Indication: HYPOTHYROIDISM
  18. METFORMIN [Concomitant]
  19. METHOTREXATE [Concomitant]
     Route: 065
  20. DACORTIN [Concomitant]
  21. OMEPRAZOLE [Concomitant]
  22. OPIOID [Concomitant]

REACTIONS (11)
  - BACILLUS INFECTION [None]
  - CARDIAC FAILURE [None]
  - CARDIAC TAMPONADE [None]
  - CARDIOMEGALY [None]
  - HYPOTENSION [None]
  - MULTI-ORGAN FAILURE [None]
  - ORAL HERPES [None]
  - PERICARDIAL EFFUSION [None]
  - RENAL FAILURE ACUTE [None]
  - RESPIRATORY FAILURE [None]
  - THROMBOCYTOPENIA [None]
